FAERS Safety Report 6043792-0 (Version None)
Quarter: 2009Q1

REPORT INFORMATION
  Report Type: 
  Country: None (occurrence: None)
  Receive Date: 20090120
  Receipt Date: 20090114
  Transmission Date: 20090719
  Serious: Yes (Death, Hospitalization, Other)
  Sender: FDA-Public Use
  Company Number: PHBS2009NL00507

PATIENT
  Age: 37 Year
  Sex: Female

DRUGS (1)
  1. CLOZAPINE [Suspect]
     Indication: SCHIZOPHRENIA, PARANOID TYPE

REACTIONS (9)
  - CERVIX CARCINOMA [None]
  - CONSTIPATION [None]
  - DIABETES MELLITUS [None]
  - LYMPHADENOPATHY [None]
  - METASTATIC NEOPLASM [None]
  - OBESITY [None]
  - OBSESSIVE-COMPULSIVE DISORDER [None]
  - PULMONARY EMBOLISM [None]
  - SCHIZOPHRENIA, PARANOID TYPE [None]
